FAERS Safety Report 21208749 (Version 3)
Quarter: 2022Q3

REPORT INFORMATION
  Report Type: Report from Study
  Country: MX (occurrence: MX)
  Receive Date: 20220812
  Receipt Date: 20220912
  Transmission Date: 20221026
  Serious: Yes (Hospitalization, Other)
  Sender: FDA-Public Use
  Company Number: MX-BAYER-2022A110300

PATIENT
  Age: 59 Year
  Sex: Male

DRUGS (3)
  1. XOFIGO [Suspect]
     Active Substance: RADIUM RA-223 DICHLORIDE
     Indication: Prostate cancer
     Dosage: 6 ML, Q4WK
     Route: 042
     Dates: start: 20220705
  2. TRAMADOL [Concomitant]
     Active Substance: TRAMADOL
     Indication: Pain
     Dosage: 50 MG, TID
     Route: 048
     Dates: start: 20220806
  3. PIROXICAM [Concomitant]
     Active Substance: PIROXICAM
     Indication: Hyperchlorhydria
     Dosage: 3 ML ORALLY BEFORE MEALS
     Dates: start: 20220814

REACTIONS (8)
  - Haemoglobin decreased [Recovering/Resolving]
  - Haematemesis [Recovered/Resolved with Sequelae]
  - Fatigue [Recovered/Resolved with Sequelae]
  - Bone pain [Recovering/Resolving]
  - Nausea [Recovering/Resolving]
  - Pain in extremity [Recovering/Resolving]
  - Arthralgia [Recovering/Resolving]
  - Gastritis [None]

NARRATIVE: CASE EVENT DATE: 20220803
